FAERS Safety Report 4905802-0 (Version None)
Quarter: 2006Q1

REPORT INFORMATION
  Report Type: 
  Country: None (occurrence: None)
  Receive Date: 20060203
  Receipt Date: 20060119
  Transmission Date: 20060701
  Serious: Yes (Hospitalization)
  Sender: FDA-Public Use
  Company Number: 2006SP000335

PATIENT
  Age: 90 Year
  Sex: Female
  Weight: 58.9676 kg

DRUGS (10)
  1. XOPENEX [Suspect]
     Indication: ASTHMA
     Dosage: 1.25 MG,PRN; INHALATION; 63 MG, PRN; INHALATION
     Route: 055
     Dates: start: 20020101, end: 20020101
  2. XOPENEX [Suspect]
     Indication: CHRONIC OBSTRUCTIVE PULMONARY DISEASE
     Dosage: 1.25 MG,PRN; INHALATION; 63 MG, PRN; INHALATION
     Route: 055
     Dates: start: 20020101, end: 20020101
  3. XOPENEX [Suspect]
     Indication: ASTHMA
     Dosage: 1.25 MG,PRN; INHALATION; 63 MG, PRN; INHALATION
     Route: 055
     Dates: start: 20020101
  4. XOPENEX [Suspect]
     Indication: CHRONIC OBSTRUCTIVE PULMONARY DISEASE
     Dosage: 1.25 MG,PRN; INHALATION; 63 MG, PRN; INHALATION
     Route: 055
     Dates: start: 20020101
  5. AMLODIPINE [Concomitant]
  6. ASPIRIN [Concomitant]
  7. EYE DROPS [Concomitant]
  8. ATORVASTATIN CALCIUM [Concomitant]
  9. PLAVIX [Concomitant]
  10. FLOVENT [Concomitant]

REACTIONS (20)
  - BRONCHITIS [None]
  - BUNDLE BRANCH BLOCK LEFT [None]
  - BUNDLE BRANCH BLOCK RIGHT [None]
  - CARDIOMYOPATHY [None]
  - DRUG INEFFECTIVE [None]
  - DYSPNOEA [None]
  - ELECTROCARDIOGRAM QRS COMPLEX PROLONGED [None]
  - GASTROOESOPHAGEAL REFLUX DISEASE [None]
  - HEART RATE INCREASED [None]
  - HIATUS HERNIA [None]
  - HYPOXIA [None]
  - LUNG INFILTRATION [None]
  - OXYGEN SATURATION DECREASED [None]
  - PALPITATIONS [None]
  - PANIC ATTACK [None]
  - PNEUMONIA [None]
  - PULMONARY HYPERTENSION [None]
  - SICK SINUS SYNDROME [None]
  - TRICUSPID VALVE INCOMPETENCE [None]
  - VENTRICULAR HYPERTROPHY [None]
